FAERS Safety Report 15285433 (Version 2)
Quarter: 2018Q3

REPORT INFORMATION
  Report Type: Report from Study
  Country: FR (occurrence: FR)
  Receive Date: 20180816
  Receipt Date: 20180821
  Transmission Date: 20181010
  Serious: Yes (Hospitalization)
  Sender: FDA-Public Use
  Company Number: FR-PFIZER INC-2017250036

PATIENT
  Age: 54 Year
  Sex: Female
  Weight: 56.95 kg

DRUGS (14)
  1. SUNITINIB MALATE. [Suspect]
     Active Substance: SUNITINIB MALATE
     Indication: RENAL CELL CARCINOMA
     Dosage: 50 MG ONCE DAILY (QD) FOR 4 WEEKS AND THEN OFF TREATMENT FOR 2 WEEKS
     Route: 048
     Dates: start: 20161228, end: 20170221
  2. SUNITINIB MALATE. [Suspect]
     Active Substance: SUNITINIB MALATE
     Dosage: 37.5 MG, CYCLIC (37.5MG, QD)
     Route: 048
     Dates: start: 20170308, end: 20170502
  3. DAIVONEX [Concomitant]
     Active Substance: CALCIPOTRIENE
     Dosage: 1 DF, UNK
     Dates: start: 201606
  4. STILNOX [Concomitant]
     Active Substance: ZOLPIDEM TARTRATE
     Dosage: 10 MG, UNK
     Dates: start: 201705
  5. SUNITINIB MALATE. [Suspect]
     Active Substance: SUNITINIB MALATE
     Dosage: 37.5 MG, CYCLIC (37.5 MG, QD)
     Route: 048
     Dates: start: 20170517
  6. COVERAM [Concomitant]
     Active Substance: AMLODIPINE\PERINDOPRIL
     Dosage: 10 MG, UNK
     Dates: start: 20170224
  7. FUNGIZONE [Concomitant]
     Active Substance: AMPHOTERICIN B
     Dosage: 1 DF, UNK
     Dates: start: 20170406
  8. SEROPLEX [Concomitant]
     Active Substance: ESCITALOPRAM OXALATE
     Dosage: 20 MG, UNK
     Dates: start: 20170525
  9. XANAX [Concomitant]
     Active Substance: ALPRAZOLAM
     Indication: DEPRESSION
     Dosage: 1 DF, DAILY (1 TABLET, QD)
     Route: 048
     Dates: start: 20170601
  10. LEVOTHYROX [Concomitant]
     Active Substance: LEVOTHYROXINE
     Dosage: 25 MG, UNK
     Dates: start: 20170201
  11. CLOBEX [Concomitant]
     Active Substance: CLOBETASOL PROPIONATE
     Dosage: 1 DF, UNK
     Dates: start: 20161221
  12. LEXOMIL [Concomitant]
     Active Substance: BROMAZEPAM
     Dosage: 1 DF, UNK
     Dates: start: 201611
  13. ESIDREX [Concomitant]
     Active Substance: HYDROCHLOROTHIAZIDE
     Dosage: 25 MG, UNK
     Dates: start: 20170224
  14. ORELOX [Concomitant]
     Active Substance: CEFPODOXIME
     Dosage: 1 DF, UNK
     Dates: start: 20170520, end: 20170527

REACTIONS (1)
  - Hypothyroidism [Recovered/Resolved]

NARRATIVE: CASE EVENT DATE: 20170602
